FAERS Safety Report 18238264 (Version 1)
Quarter: 2020Q3

REPORT INFORMATION
  Report Type: Spontaneous
  Country: US (occurrence: US)
  Receive Date: 20200907
  Receipt Date: 20200907
  Transmission Date: 20201103
  Serious: No
  Sender: FDA-Public Use
  Company Number: US-PFIZER INC-2020343256

PATIENT
  Weight: 91.63 kg

DRUGS (1)
  1. LYRICA [Suspect]
     Active Substance: PREGABALIN
     Indication: NEUROPATHY PERIPHERAL
     Dosage: UNK
     Dates: start: 2020

REACTIONS (4)
  - Thinking abnormal [Unknown]
  - Mood swings [Unknown]
  - Depression [Unknown]
  - Body height decreased [Unknown]

NARRATIVE: CASE EVENT DATE: 2020
